FAERS Safety Report 10193099 (Version 2)
Quarter: 2014Q2

REPORT INFORMATION
  Report Type: Spontaneous
  Country: US (occurrence: US)
  Receive Date: 20140524
  Receipt Date: 20140524
  Transmission Date: 20141212
  Serious: No
  Sender: FDA-Public Use
  Company Number: US-SANOFI-AVENTIS-2013SA027106

PATIENT
  Age: 69 Year
  Sex: Female
  Weight: 97 kg

DRUGS (8)
  1. LANTUS [Suspect]
     Indication: DIABETES MELLITUS
     Dosage: DOSE:45 UNIT(S)
     Route: 051
  2. LANTUS [Suspect]
     Indication: DIABETES MELLITUS
     Dosage: DOSE:45 UNIT(S)
     Route: 051
  3. LANTUS [Suspect]
     Indication: DIABETES MELLITUS
     Dosage: FORM:VIAL
     Route: 065
  4. METFORMIN [Concomitant]
  5. LOSARTAN [Concomitant]
     Indication: BLOOD PRESSURE INCREASED
  6. LEVOTHYROXINE [Concomitant]
     Indication: THYROID DISORDER
  7. ATORVASTATIN [Concomitant]
     Indication: BLOOD CHOLESTEROL INCREASED
  8. ZANTAC [Concomitant]
     Indication: ULCER

REACTIONS (3)
  - Pruritus [Not Recovered/Not Resolved]
  - Liquid product physical issue [Unknown]
  - Drug dose omission [Unknown]
